FAERS Safety Report 21305602 (Version 3)
Quarter: 2022Q3

REPORT INFORMATION
  Report Type: Spontaneous
  Country: US (occurrence: US)
  Receive Date: 20220908
  Receipt Date: 20220913
  Transmission Date: 20221027
  Serious: Yes (Hospitalization)
  Sender: FDA-Public Use
  Company Number: US-LEO Pharma-345295

PATIENT
  Sex: Male

DRUGS (29)
  1. ASPIRIN [Concomitant]
     Active Substance: ASPIRIN
     Indication: Product used for unknown indication
     Dosage: DOSAGE : ?REASON LOT NO UNKNOWN : UNKNOWN?GIVEN DURATION : ?STARTED - PARTIAL : ?STOPPED - PARTIAL :
  2. PLAVIX [Concomitant]
     Active Substance: CLOPIDOGREL BISULFATE
     Indication: Product used for unknown indication
     Dosage: DOSAGE : ?REASON LOT NO UNKNOWN : UNKNOWN?GIVEN DURATION : ?STARTED - PARTIAL : ?STOPPED - PARTIAL :
  3. MIRALAX [Concomitant]
     Active Substance: POLYETHYLENE GLYCOL 3350
     Indication: Product used for unknown indication
     Dosage: DOSAGE : ?REASON LOT NO UNKNOWN : UNKNOWN?GIVEN DURATION : ?STARTED - PARTIAL : ?STOPPED - PARTIAL :
  4. SYMBICORT [Concomitant]
     Active Substance: BUDESONIDE\FORMOTEROL FUMARATE DIHYDRATE
     Indication: Product used for unknown indication
     Dosage: DOSAGE : ?REASON LOT NO UNKNOWN : UNKNOWN?GIVEN DURATION : ?STARTED - PARTIAL : ?STOPPED - PARTIAL :
  5. TRELEGY ELLIPTA [Concomitant]
     Active Substance: FLUTICASONE FUROATE\UMECLIDINIUM BROMIDE\VILANTEROL TRIFENATATE
     Indication: Product used for unknown indication
     Dosage: DOSAGE : ?REASON LOT NO UNKNOWN : UNKNOWN?GIVEN DURATION : ?STARTED - PARTIAL : ?STOPPED - PARTIAL :
  6. IRON [Concomitant]
     Active Substance: IRON
     Indication: Product used for unknown indication
     Dosage: DOSAGE : ?REASON LOT NO UNKNOWN : UNKNOWN?GIVEN DURATION : ?STARTED - PARTIAL : ?STOPPED - PARTIAL :
  7. TERAZOSIN [Concomitant]
     Active Substance: TERAZOSIN HYDROCHLORIDE
     Indication: Product used for unknown indication
     Dosage: DOSAGE : ?REASON LOT NO UNKNOWN : UNKNOWN?GIVEN DURATION : ?STARTED - PARTIAL : ?STOPPED - PARTIAL :
  8. OLOPATADINE [Concomitant]
     Active Substance: OLOPATADINE
     Indication: Product used for unknown indication
     Dosage: DOSAGE : ?REASON LOT NO UNKNOWN : UNKNOWN?GIVEN DURATION : ?STARTED - PARTIAL : ?STOPPED - PARTIAL :
  9. METHYLPREDNISOLONE [Concomitant]
     Active Substance: METHYLPREDNISOLONE
     Indication: Product used for unknown indication
     Dosage: DOSAGE : ?REASON LOT NO UNKNOWN : UNKNOWN?GIVEN DURATION : ?STARTED - PARTIAL : ?STOPPED - PARTIAL :
  10. LORAZEPAM [Concomitant]
     Active Substance: LORAZEPAM
     Indication: Product used for unknown indication
     Dosage: DOSAGE : ?REASON LOT NO UNKNOWN : UNKNOWN?GIVEN DURATION : ?STARTED - PARTIAL : ?STOPPED - PARTIAL :
  11. ADBRY [Suspect]
     Active Substance: TRALOKINUMAB-LDRM
     Indication: Product used for unknown indication
     Route: 058
     Dates: start: 20220526
  12. AZITHROMYCIN [Concomitant]
     Active Substance: AZITHROMYCIN
     Indication: Product used for unknown indication
     Dosage: DOSAGE : ?REASON LOT NO UNKNOWN : UNKNOWN?GIVEN DURATION : ?STARTED - PARTIAL : ?STOPPED - PARTIAL :
  13. KETOCONAZOLE [Concomitant]
     Active Substance: KETOCONAZOLE
     Indication: Product used for unknown indication
     Dosage: DOSAGE : ?REASON LOT NO UNKNOWN : UNKNOWN?GIVEN DURATION : ?STARTED - PARTIAL : ?STOPPED - PARTIAL :
  14. UROXATRAL [Concomitant]
     Active Substance: ALFUZOSIN HYDROCHLORIDE
     Indication: Product used for unknown indication
     Dosage: DOSAGE : ?REASON LOT NO UNKNOWN : UNKNOWN?GIVEN DURATION : ?STARTED - PARTIAL : ?STOPPED - PARTIAL :
  15. MUCINEX [Concomitant]
     Active Substance: GUAIFENESIN
     Indication: Product used for unknown indication
     Dosage: DOSAGE : ?REASON LOT NO UNKNOWN : UNKNOWN?GIVEN DURATION : ?STARTED - PARTIAL : ?STOPPED - PARTIAL :
  16. ELIQUIS [Concomitant]
     Active Substance: APIXABAN
     Indication: Product used for unknown indication
     Dosage: DOSAGE : 5 MG TABLET?REASON LOT NO UNKNOWN : UNKNOWN?GIVEN DURATION : ?STARTED - PARTIAL : ?STOPPED
  17. FLUCONAZOLE [Concomitant]
     Active Substance: FLUCONAZOLE
     Indication: Product used for unknown indication
     Dosage: DOSAGE : ?REASON LOT NO UNKNOWN : UNKNOWN?GIVEN DURATION : ?STARTED - PARTIAL : ?STOPPED - PARTIAL :
  18. VENTOLIN [Concomitant]
     Active Substance: ALBUTEROL SULFATE
     Indication: Product used for unknown indication
     Dosage: DOSAGE : ?REASON LOT NO UNKNOWN : UNKNOWN?GIVEN DURATION : ?STARTED - PARTIAL : ?STOPPED - PARTIAL :
  19. COMBIVENT [Concomitant]
     Active Substance: ALBUTEROL SULFATE\IPRATROPIUM BROMIDE
     Indication: Product used for unknown indication
     Dosage: DOSAGE : ?REASON LOT NO UNKNOWN : UNKNOWN?GIVEN DURATION : ?STARTED - PARTIAL : ?STOPPED - PARTIAL :
  20. PREDNISONE [Concomitant]
     Active Substance: PREDNISONE
     Indication: Product used for unknown indication
     Dosage: DOSAGE : ?REASON LOT NO UNKNOWN : UNKNOWN?GIVEN DURATION : ?STARTED - PARTIAL : ?STOPPED - PARTIAL :
  21. FLUOCINOLONE [Concomitant]
     Active Substance: FLUOCINOLONE
     Indication: Product used for unknown indication
     Dosage: DOSAGE : ?REASON LOT NO UNKNOWN : UNKNOWN?GIVEN DURATION : ?STARTED - PARTIAL : ?STOPPED - PARTIAL :
  22. DESLORATADINE [Concomitant]
     Active Substance: DESLORATADINE
     Indication: Product used for unknown indication
     Dosage: DOSAGE : ?REASON LOT NO UNKNOWN : UNKNOWN?GIVEN DURATION : ?STARTED - PARTIAL : ?STOPPED - PARTIAL :
  23. VITAMIN B COMPLEX [Concomitant]
     Active Substance: CYANOCOBALAMIN\DEXPANTHENOL\NIACINAMIDE\PYRIDOXINE HYDROCHLORIDE\RIBOFLAVIN 5^-PHOSPHATE SODIUM\THIA
     Indication: Product used for unknown indication
     Route: 048
  24. DEVICE [Suspect]
     Active Substance: DEVICE
     Indication: Product used for unknown indication
  25. DEVICE [Suspect]
     Active Substance: DEVICE
     Indication: Product used for unknown indication
  26. DEVICE [Suspect]
     Active Substance: DEVICE
     Indication: Product used for unknown indication
  27. DEVICE [Suspect]
     Active Substance: DEVICE
     Indication: Product used for unknown indication
  28. pfizer covid [Concomitant]
     Indication: Product used for unknown indication
     Dosage: DOSAGE : ?REASON LOT NO UNKNOWN : UNKNOWN?GIVEN DURATION : ?STARTED - PARTIAL : ?STOPPED - PARTIAL :
  29. COZAAR [Concomitant]
     Active Substance: LOSARTAN POTASSIUM
     Indication: Product used for unknown indication
     Dosage: DOSAGE : ?REASON LOT NO UNKNOWN : UNKNOWN?GIVEN DURATION : ?STARTED - PARTIAL : ?STOPPED - PARTIAL :

REACTIONS (2)
  - Eye pruritus [Not Recovered/Not Resolved]
  - Cardiac ablation [Unknown]
